FAERS Safety Report 21537337 (Version 2)
Quarter: 2023Q1

REPORT INFORMATION
  Report Type: Report from Study
  Country: US (occurrence: US)
  Receive Date: 20221101
  Receipt Date: 20230104
  Transmission Date: 20230418
  Serious: No
  Sender: FDA-Public Use
  Company Number: US-ABBVIE-4183347

PATIENT
  Age: 56 Year
  Sex: Male
  Weight: 82.553 kg

DRUGS (5)
  1. IMBRUVICA [Suspect]
     Active Substance: IBRUTINIB
     Indication: Chronic lymphocytic leukaemia
     Dosage: LETHARGIC EVENT^S ONSET DATE WAS 2022-06 AND CESSATION DATE WAS 2022-07.
     Route: 048
     Dates: start: 20220620
  2. TEMAZEPAM [Concomitant]
     Active Substance: TEMAZEPAM
     Indication: Product used for unknown indication
  3. PFIZER-BIONTECH COVID-19 VACCINE [Concomitant]
     Active Substance: TOZINAMERAN
     Indication: COVID-19 immunisation
     Dosage: 2ND DOSE, ONCE
     Route: 030
     Dates: start: 20210327, end: 20210327
  4. PFIZER-BIONTECH COVID-19 VACCINE [Concomitant]
     Active Substance: TOZINAMERAN
     Indication: COVID-19 immunisation
     Dosage: ONCE, BOOSTER DOSE
     Route: 030
     Dates: start: 20211110, end: 20211110
  5. PFIZER-BIONTECH COVID-19 VACCINE [Concomitant]
     Active Substance: TOZINAMERAN
     Indication: COVID-19 immunisation
     Dosage: 1ST DOSE, ONCE
     Route: 030
     Dates: start: 20210305, end: 20210305

REACTIONS (4)
  - Benign neoplasm of urethra [Recovered/Resolved]
  - Lethargy [Recovered/Resolved]
  - Blood urine present [Unknown]
  - Benign neoplasm of bladder [Recovered/Resolved]

NARRATIVE: CASE EVENT DATE: 20220901
